FAERS Safety Report 21102107 (Version 2)
Quarter: 2023Q4

REPORT INFORMATION
  Report Type: Report from Study
  Country: US (occurrence: US)
  Receive Date: 20220719
  Receipt Date: 20231024
  Transmission Date: 20240110
  Serious: No
  Sender: FDA-Public Use
  Company Number: US-IDORSIA-000675-2022-US

PATIENT
  Age: 83 Year
  Sex: Female

DRUGS (1)
  1. QUVIVIQ [Suspect]
     Active Substance: DARIDOREXANT
     Indication: Insomnia
     Dosage: 25 MG, QD
     Route: 048
     Dates: start: 20220615, end: 20220622

REACTIONS (2)
  - Restlessness [Unknown]
  - Hallucination [Unknown]

NARRATIVE: CASE EVENT DATE: 20220615
